FAERS Safety Report 6103712-7 (Version None)
Quarter: 2009Q1

REPORT INFORMATION
  Report Type: 
  Country: None (occurrence: None)
  Receive Date: 20090227
  Receipt Date: 20081210
  Transmission Date: 20090719
  Serious: Yes (Other)
  Sender: FDA-Public Use
  Company Number: 86353

PATIENT
  Age: 18 Year
  Sex: Male
  Weight: 65.8 kg

DRUGS (1)
  1. ACCUTANE [Suspect]
     Indication: ACNE CYSTIC
     Dosage: 40 MG 1 PER 2 DAY ORAL
     Route: 048
     Dates: start: 19950301, end: 19950831

REACTIONS (5)
  - ABDOMINAL DISCOMFORT [None]
  - CHEILITIS [None]
  - CROHN'S DISEASE [None]
  - DIARRHOEA [None]
  - FLATULENCE [None]
